FAERS Safety Report 4464701-1 (Version None)
Quarter: 2004Q3

REPORT INFORMATION
  Report Type: 
  Country: None (occurrence: None)
  Receive Date: 20040929
  Receipt Date: 20040908
  Transmission Date: 20050211
  Serious: Yes (Hospitalization)
  Sender: FDA-Public Use
  Company Number: CA_040907260

PATIENT
  Age: 30 Year
  Sex: Female

DRUGS (3)
  1. ZYPREXA [Suspect]
     Dosage: 5 MG/1 IN THE EVENING
     Dates: start: 20030330
  2. RISPERIDONE [Concomitant]
  3. SERTRALINE HCL [Concomitant]

REACTIONS (18)
  - BRIEF PSYCHOTIC DISORDER, WITH POSTPARTUM ONSET [None]
  - DECREASED APPETITE [None]
  - DELUSION [None]
  - DELUSION OF REFERENCE [None]
  - DEPRESSION [None]
  - DRUG EXPOSURE DURING PREGNANCY [None]
  - EMOTIONAL DISTRESS [None]
  - FATIGUE [None]
  - HEADACHE [None]
  - INCREASED APPETITE [None]
  - INITIAL INSOMNIA [None]
  - MORBID THOUGHTS [None]
  - PARANOIA [None]
  - PERSECUTORY DELUSION [None]
  - SELF ESTEEM DECREASED [None]
  - SOCIAL PROBLEM [None]
  - THERAPY NON-RESPONDER [None]
  - VICTIM OF ABUSE [None]
